FAERS Safety Report 5311729-5 (Version None)
Quarter: 2007Q2

REPORT INFORMATION
  Report Type: 
  Country: None (occurrence: None)
  Receive Date: 20070430
  Receipt Date: 20070418
  Transmission Date: 20071010
  Serious: Yes (Other)
  Sender: FDA-Public Use
  Company Number: US-ROCHE-454210

PATIENT
  Age: 57 Year
  Sex: Female

DRUGS (5)
  1. PEGASYS [Suspect]
     Dosage: ROUTE REPORTED AS: INJ.
     Route: 050
     Dates: start: 20050816, end: 20060701
  2. COPEGUS [Suspect]
     Dosage: DOSAGE REPORTED AS 3 PILLS A DAY.
     Route: 048
     Dates: start: 20050816, end: 20060701
  3. PREMARIN [Concomitant]
  4. KLONOPIN [Concomitant]
  5. HYDROCODONE [Concomitant]

REACTIONS (11)
  - DEPRESSION [None]
  - FATIGUE [None]
  - HALLUCINATION, OLFACTORY [None]
  - HALLUCINATION, VISUAL [None]
  - MENTAL STATUS CHANGES [None]
  - NAUSEA [None]
  - OBSESSIVE-COMPULSIVE DISORDER [None]
  - PARANOIA [None]
  - RASH [None]
  - URINARY INCONTINENCE [None]
  - WEIGHT INCREASED [None]
